FAERS Safety Report 13122911 (Version 1)
Quarter: 2017Q1

REPORT INFORMATION
  Report Type: Report from Study
  Country: FR (occurrence: FR)
  Receive Date: 20170117
  Receipt Date: 20170117
  Transmission Date: 20170428
  Serious: Yes (Death)
  Sender: FDA-Public Use
  Company Number: FR-PFIZER INC-2017000088

PATIENT

DRUGS (2)
  1. CYTARABINE. [Suspect]
     Active Substance: CYTARABINE
     Indication: ACUTE LEUKAEMIA
     Dosage: 3G/M2 EVERY TWELVE HOURS OVER THE FIRST TWO DAYS TOTAL FOUR DOSES
  2. AMSA [Suspect]
     Active Substance: AMSACRINE
     Indication: ACUTE LEUKAEMIA
     Dosage: 90-120MG/M2 PER DAY OVER FIVE DAYS

REACTIONS (1)
  - Bone marrow failure [Fatal]
